FAERS Safety Report 6940740-3 (Version None)
Quarter: 2010Q3

REPORT INFORMATION
  Report Type: 
  Country: None (occurrence: None)
  Receive Date: 20100820
  Receipt Date: 20100803
  Transmission Date: 20110219
  Serious: Yes (Other)
  Sender: FDA-Public Use
  Company Number: 2010P1000667

PATIENT
  Age: 52 Year
  Sex: Female

DRUGS (1)
  1. DESOXIMETASONE [Suspect]

REACTIONS (3)
  - HEPATIC CIRRHOSIS [None]
  - PAIN OF SKIN [None]
  - TINEA INFECTION [None]
